FAERS Safety Report 7204930-7 (Version None)
Quarter: 2010Q4

REPORT INFORMATION
  Report Type: 
  Country: None (occurrence: None)
  Receive Date: 20101217
  Receipt Date: 20101206
  Transmission Date: 20110411
  Serious: Yes (Death, Hospitalization)
  Sender: FDA-Public Use
  Company Number: 2009AC000471

PATIENT
  Age: 66 Year
  Sex: Male

DRUGS (30)
  1. DIGOXIN [Suspect]
     Dosage: PO
     Route: 048
     Dates: start: 20041121, end: 20080326
  2. DIGOXIN [Suspect]
     Indication: ATRIAL FIBRILLATION
     Dosage: 0.25 MG;QD;PO
     Route: 048
     Dates: start: 20041101, end: 20071201
  3. DIGOXIN [Suspect]
     Indication: ATRIAL FIBRILLATION
     Dosage: 0.125 MG;QD;PO
     Route: 048
     Dates: start: 20071201, end: 20080401
  4. *FOLIC ACID [Concomitant]
  5. LOVOXYL [Concomitant]
  6. PAROXETINE HCL [Concomitant]
  7. SOTALOL [Concomitant]
  8. TORSEMIDE [Concomitant]
  9. VITAMIN B6 [Concomitant]
  10. VYTORIN [Concomitant]
  11. COUMADIN [Concomitant]
  12. WELLBUTRIN [Concomitant]
  13. ZOLPODEM [Concomitant]
  14. OMEPRAZOLE [Concomitant]
  15. LASIX [Concomitant]
  16. DOBUTAMINE HCL [Concomitant]
  17. AMIODARONE [Concomitant]
  18. VITAMIN K TAB [Concomitant]
  19. NITROGLYCEIRN [Concomitant]
  20. CAPTOPRIL [Concomitant]
  21. MILRINONE [Concomitant]
  22. MULTI-VITAMIN [Concomitant]
  23. SIMVASTATIN [Concomitant]
  24. DOXYCYCLINE [Concomitant]
  25. SERTRALINE [Concomitant]
  26. SEROQUEL [Concomitant]
  27. SYNTHROID [Concomitant]
  28. ZETIA [Concomitant]
  29. CAPITROL [Concomitant]
  30. SPIRONOLACTONE [Concomitant]

REACTIONS (30)
  - AMNESIA [None]
  - AORTIC ARTERIOSCLEROSIS [None]
  - ATRIAL FIBRILLATION [None]
  - CARDIAC FAILURE ACUTE [None]
  - CARDIAC MURMUR [None]
  - CARDIOACTIVE DRUG LEVEL INCREASED [None]
  - COGNITIVE DISORDER [None]
  - CORONARY ARTERY OCCLUSION [None]
  - DECREASED APPETITE [None]
  - DEPRESSION [None]
  - ECONOMIC PROBLEM [None]
  - FEELING ABNORMAL [None]
  - HYPOTENSION [None]
  - INSOMNIA [None]
  - INTERNATIONAL NORMALISED RATIO INCREASED [None]
  - ISCHAEMIC CARDIOMYOPATHY [None]
  - LOSS OF CONSCIOUSNESS [None]
  - LUNG NEOPLASM [None]
  - MITRAL VALVE INCOMPETENCE [None]
  - MULTIPLE INJURIES [None]
  - NAUSEA [None]
  - PRESYNCOPE [None]
  - PULMONARY HYPERTENSION [None]
  - RENAL FAILURE [None]
  - SHOCK [None]
  - TRICUSPID VALVE INCOMPETENCE [None]
  - VENTRICULAR EXTRASYSTOLES [None]
  - VENTRICULAR TACHYCARDIA [None]
  - VISUAL IMPAIRMENT [None]
  - WEIGHT DECREASED [None]
